FAERS Safety Report 6934177-0 (Version None)
Quarter: 2010Q3

REPORT INFORMATION
  Report Type: 
  Country: None (occurrence: None)
  Receive Date: 20100820
  Receipt Date: 20100816
  Transmission Date: 20110219
  Serious: Yes (Hospitalization)
  Sender: FDA-Public Use
  Company Number: US-SANOFI-AVENTIS-2010SA048804

PATIENT
  Age: 67 Year
  Sex: Female

DRUGS (1)
  1. LANTUS [Suspect]
     Indication: TYPE 2 DIABETES MELLITUS
     Dosage: DOSE:55 UNIT(S)
     Route: 058
     Dates: start: 20000101

REACTIONS (4)
  - INJECTION SITE HAEMORRHAGE [None]
  - JOINT SWELLING [None]
  - PAIN IN EXTREMITY [None]
  - VASODILATATION [None]
